FAERS Safety Report 9354239 (Version 1)
Quarter: 2013Q2

REPORT INFORMATION
  Report Type: Spontaneous
  Country: US (occurrence: US)
  Receive Date: 20130618
  Receipt Date: 20130618
  Transmission Date: 20140414
  Serious: No
  Sender: FDA-Public Use
  Company Number: US-BAYER-2013-074953

PATIENT
  Age: 43 Year
  Sex: Female
  Weight: 65.76 kg

DRUGS (2)
  1. ALEVE TABLET [Suspect]
     Dosage: 3 DF, ONCE
     Route: 048
     Dates: start: 20130608, end: 20130608
  2. IBUPROFEN [Concomitant]
     Indication: MUSCLE SPASMS

REACTIONS (1)
  - Incorrect dose administered [None]
